FAERS Safety Report 9204569 (Version 1)
Quarter: 2013Q2

REPORT INFORMATION
  Report Type: Spontaneous
  Country: US (occurrence: US)
  Receive Date: 20130402
  Receipt Date: 20130402
  Transmission Date: 20140414
  Serious: Yes (Hospitalization)
  Sender: FDA-Public Use
  Company Number: US-BAYER-2013-038314

PATIENT
  Sex: Male

DRUGS (1)
  1. DOMEBORO POWDER PACKETS [Suspect]
     Route: 048

REACTIONS (2)
  - Incorrect route of drug administration [None]
  - Malaise [None]
